FAERS Safety Report 12590105 (Version 1)
Quarter: 2016Q3

REPORT INFORMATION
  Report Type: Spontaneous
  Country: US (occurrence: US)
  Receive Date: 20160725
  Receipt Date: 20160725
  Transmission Date: 20161109
  Serious: No
  Sender: FDA-Public Use
  Company Number: US-GLAXOSMITHKLINE-US2016102896

PATIENT
  Age: 47 Year
  Sex: Male

DRUGS (5)
  1. ADVAIR DISKUS [Suspect]
     Active Substance: FLUTICASONE PROPIONATE\SALMETEROL XINAFOATE
     Indication: SARCOIDOSIS
     Dosage: 500/50
     Route: 055
     Dates: start: 2001
  2. ADVAIR DISKUS [Suspect]
     Active Substance: FLUTICASONE PROPIONATE\SALMETEROL XINAFOATE
     Indication: ASTHMA
  3. SINGULAIR [Concomitant]
     Active Substance: MONTELUKAST SODIUM
  4. SYMBICORT [Concomitant]
     Active Substance: BUDESONIDE\FORMOTEROL FUMARATE DIHYDRATE
  5. LANSOPRAZOLE. [Concomitant]
     Active Substance: LANSOPRAZOLE

REACTIONS (6)
  - Wrong technique in product usage process [Unknown]
  - Intentional underdose [Not Recovered/Not Resolved]
  - Cough [Recovered/Resolved]
  - Intentional product use issue [Unknown]
  - Product use issue [Unknown]
  - Device use error [Unknown]

NARRATIVE: CASE EVENT DATE: 2012
